FAERS Safety Report 10178456 (Version 1)
Quarter: 2014Q2

REPORT INFORMATION
  Report Type: Spontaneous
  Country: US (occurrence: None)
  Receive Date: 20140516
  Receipt Date: 20140516
  Transmission Date: 20141212
  Serious: No
  Sender: FDA-Public Use
  Company Number: None

PATIENT
  Sex: Male
  Weight: 108.2 kg

DRUGS (2)
  1. FORTEO [Suspect]
     Indication: PRODUCT USED FOR UNKNOWN INDICATION
     Dosage: 20MCG DAILY SUBQ
     Route: 058
     Dates: start: 20131122
  2. FORTEO [Suspect]
     Indication: PRODUCT USED FOR UNKNOWN INDICATION
     Dosage: 20MCG DAILY SUBQ
     Route: 058
     Dates: start: 20131122

REACTIONS (3)
  - Drug dose omission [None]
  - Device malfunction [None]
  - Device defective [None]
